FAERS Safety Report 25165660 (Version 1)
Quarter: 2025Q2

REPORT INFORMATION
  Report Type: Spontaneous
  Country: US (occurrence: US)
  Receive Date: 20250407
  Receipt Date: 20250407
  Transmission Date: 20250717
  Serious: Yes (Death, Hospitalization)
  Sender: MERCK SHARP AND DOHME
  Company Number: US-009507513-2271229

PATIENT
  Sex: Male

DRUGS (1)
  1. KEYTRUDA [Suspect]
     Active Substance: PEMBROLIZUMAB
     Indication: Bladder cancer
     Dates: start: 2024

REACTIONS (3)
  - Death [Fatal]
  - Blood glucose increased [Unknown]
  - Encephalitis [Unknown]

NARRATIVE: CASE EVENT DATE: 20250301
